FAERS Safety Report 15372197 (Version 8)
Quarter: 2020Q3

REPORT INFORMATION
  Report Type: Spontaneous
  Country: US (occurrence: US)
  Receive Date: 20180911
  Receipt Date: 20200825
  Transmission Date: 20201102
  Serious: Yes (Hospitalization)
  Sender: FDA-Public Use
  Company Number: US-ACTELION-A-NJ2018-178688

PATIENT
  Age: 41 Year
  Sex: Female
  Weight: 50.79 kg

DRUGS (8)
  1. VELETRI [Suspect]
     Active Substance: EPOPROSTENOL
     Indication: PULMONARY ARTERIAL HYPERTENSION
     Dosage: 120 NG/KG, PER MIN
     Route: 042
     Dates: start: 20170526
  2. VELETRI [Suspect]
     Active Substance: EPOPROSTENOL
     Dosage: 128 NG/KG, PER MIN
     Route: 042
  3. VELETRI [Suspect]
     Active Substance: EPOPROSTENOL
     Dosage: 164 NG/KG, PER MIN
     Route: 042
     Dates: start: 201909
  4. TADALAFIL. [Concomitant]
     Active Substance: TADALAFIL
  5. WARFARIN [Concomitant]
     Active Substance: WARFARIN
  6. VELETRI [Suspect]
     Active Substance: EPOPROSTENOL
     Dosage: 93 NG/KG, PER MIN
     Route: 042
     Dates: start: 201909
  7. ADCIRCA [Concomitant]
     Active Substance: TADALAFIL
  8. AMBRISENTAN [Concomitant]
     Active Substance: AMBRISENTAN

REACTIONS (9)
  - Nasal congestion [Unknown]
  - Device alarm issue [Recovered/Resolved]
  - Hepatomegaly [Unknown]
  - Influenza [Not Recovered/Not Resolved]
  - Hospitalisation [Unknown]
  - Cardiac tamponade [Unknown]
  - Pneumonia [Recovered/Resolved]
  - Device occlusion [Unknown]
  - Anxiety [Unknown]

NARRATIVE: CASE EVENT DATE: 20180830
